FAERS Safety Report 5197291-9 (Version None)
Quarter: 2006Q4

REPORT INFORMATION
  Report Type: 
  Country: None (occurrence: None)
  Receive Date: 20061228
  Receipt Date: 20061219
  Transmission Date: 20070319
  Serious: Yes (Disabling)
  Sender: FDA-Public Use
  Company Number: 203370

PATIENT
  Age: 38 Year
  Sex: Female

DRUGS (1)
  1. RITUXAN [Suspect]
     Indication: EXTRANODAL MARGINAL ZONE B-CELL LYMPHOMA (MALT TYPE)
     Dosage: 620 MG, 1/WEEK, INTRAVENOUS
     Route: 042
     Dates: start: 20030718, end: 20030725

REACTIONS (2)
  - ENCEPHALITIS VIRAL [None]
  - MENINGITIS [None]
